FAERS Safety Report 10334952 (Version 1)
Quarter: 2014Q3

REPORT INFORMATION
  Report Type: Spontaneous
  Country: US (occurrence: None)
  Receive Date: 20140722
  Receipt Date: 20140722
  Transmission Date: 20150326
  Serious: Yes (Life-Threatening, Hospitalization, Disabling, Other)
  Sender: FDA-Public Use
  Company Number: None

PATIENT
  Age: 92 Year
  Sex: Female
  Weight: 72.58 kg

DRUGS (8)
  1. AVASTIN [Suspect]
     Active Substance: BEVACIZUMAB
     Indication: MACULAR DEGENERATION
     Dosage: INJECTION IN RIGHT EYE BY DR.
     Dates: start: 20140310
  2. DIOVAN [Concomitant]
     Active Substance: VALSARTAN
  3. POTASSIUM [Concomitant]
     Active Substance: POTASSIUM
  4. PIOGLITAZONE HCL [Concomitant]
     Active Substance: PIOGLITAZONE
  5. DILTIAZEM [Concomitant]
     Active Substance: DILTIAZEM
  6. TEA [Concomitant]
     Active Substance: TEA LEAF
  7. PROMETHAZINE [Concomitant]
     Active Substance: PROMETHAZINE\PROMETHAZINE HYDROCHLORIDE
  8. OMEPAZOLE [Concomitant]

REACTIONS (3)
  - Poisoning [None]
  - Cerebrovascular accident [None]
  - Myocardial infarction [None]

NARRATIVE: CASE EVENT DATE: 20140310
